FAERS Safety Report 6667676-X (Version None)
Quarter: 2010Q2

REPORT INFORMATION
  Report Type: 
  Country: None (occurrence: None)
  Receive Date: 20100401
  Receipt Date: 20100329
  Transmission Date: 20101027
  Serious: Yes (Hospitalization)
  Sender: FDA-Public Use
  Company Number: ALL1-2010-01742

PATIENT
  Age: 80 Year
  Sex: Male

DRUGS (1)
  1. FOSRENOL [Suspect]
     Dosage: ORAL
     Route: 048
     Dates: start: 20090101

REACTIONS (2)
  - COAGULOPATHY [None]
  - GENERALISED OEDEMA [None]
